FAERS Safety Report 25926179 (Version 1)
Quarter: 2025Q4

REPORT INFORMATION
  Report Type: Spontaneous
  Country: US (occurrence: None)
  Receive Date: 20251014
  Receipt Date: 20251014
  Transmission Date: 20260117
  Serious: Yes (Hospitalization)
  Sender: FDA-CTU
  Company Number: None

PATIENT
  Sex: Male

DRUGS (1)
  1. NULOJIX [Suspect]
     Active Substance: BELATACEPT
     Indication: Renal transplant
     Dosage: 562 MG EVERY 4 WEEKS INTRAVENOUS?
     Route: 042
     Dates: start: 20240228

REACTIONS (2)
  - Renal function test abnormal [None]
  - Therapy interrupted [None]
